FAERS Safety Report 8950457 (Version 4)
Quarter: 2014Q1

REPORT INFORMATION
  Report Type: Report from Study
  Country: JP (occurrence: JP)
  Receive Date: 20121207
  Receipt Date: 20140103
  Transmission Date: 20141002
  Serious: Yes (Other)
  Sender: FDA-Public Use
  Company Number: JP-JNJFOC-20121202674

PATIENT
  Age: 57 Year
  Sex: Male
  Weight: 70 kg

DRUGS (21)
  1. STELARA [Suspect]
     Indication: PSORIASIS
     Route: 058
     Dates: start: 20111026, end: 20111026
  2. STELARA [Suspect]
     Indication: PSORIASIS
     Route: 058
     Dates: start: 20120118, end: 20120118
  3. STELARA [Suspect]
     Indication: PSORIASIS
     Route: 058
     Dates: start: 20120411, end: 20120411
  4. STELARA [Suspect]
     Indication: PSORIASIS
     Route: 058
     Dates: start: 20120704, end: 20120704
  5. STELARA [Suspect]
     Indication: PSORIASIS
     Route: 058
     Dates: start: 20120919, end: 20120919
  6. STELARA [Suspect]
     Indication: PSORIASIS
     Route: 058
     Dates: start: 20130814
  7. STELARA [Suspect]
     Indication: PSORIASIS
     Route: 058
     Dates: start: 20130227, end: 20130227
  8. STELARA [Suspect]
     Indication: PSORIASIS
     Route: 058
     Dates: start: 20130522, end: 20130522
  9. STELARA [Suspect]
     Indication: PSORIASIS
     Route: 058
     Dates: start: 20120411
  10. STELARA [Suspect]
     Indication: PSORIASIS
     Route: 058
     Dates: start: 20110928
  11. STELARA [Suspect]
     Indication: PSORIASIS
     Route: 058
     Dates: start: 20121205, end: 20121205
  12. ALLELOCK [Concomitant]
     Indication: PSORIASIS
     Route: 048
     Dates: start: 20110928, end: 20111102
  13. OXAROL [Concomitant]
     Indication: PSORIASIS
     Route: 061
     Dates: start: 20110928, end: 20111102
  14. OXAROL [Concomitant]
     Indication: PSORIASIS
     Route: 061
     Dates: start: 20121031
  15. OXAROL [Concomitant]
     Indication: PSORIASIS
     Route: 061
     Dates: start: 20121031
  16. ANTEBATE [Concomitant]
     Indication: PSORIASIS
     Route: 061
     Dates: start: 20120704
  17. ANTEBATE [Concomitant]
     Indication: PSORIASIS
     Route: 061
     Dates: start: 20110928, end: 20111102
  18. ANTEBATE [Concomitant]
     Indication: PSORIASIS
     Route: 061
     Dates: start: 20121031
  19. LIDOMEX [Concomitant]
     Indication: PSORIASIS
     Route: 061
     Dates: start: 20110928, end: 20111102
  20. WHITE PETROLATUM [Concomitant]
     Indication: PSORIASIS
     Route: 061
     Dates: start: 20110928, end: 20111102
  21. PROTOPIC [Concomitant]
     Indication: PSORIASIS
     Route: 061
     Dates: start: 20120704

REACTIONS (1)
  - Gamma-glutamyltransferase increased [Not Recovered/Not Resolved]
